FAERS Safety Report 5107820-9 (Version None)
Quarter: 2006Q3

REPORT INFORMATION
  Report Type: 
  Country: None (occurrence: None)
  Receive Date: 20060919
  Receipt Date: 20060801
  Transmission Date: 20061208
  Serious: Yes (Life-Threatening, Hospitalization)
  Sender: FDA-Public Use
  Company Number: JP-BRACCO-BRO-010366

PATIENT
  Sex: Female
  Weight: 57 kg

DRUGS (9)
  1. IOPAMIRON [Suspect]
     Indication: METASTASES TO ADRENALS
     Dosage: 3 ML/ SEC
     Route: 042
     Dates: start: 20060728, end: 20060728
  2. IOPAMIRON [Suspect]
     Dosage: 3 ML/ SEC
     Route: 042
     Dates: start: 20060728, end: 20060728
  3. IOPAMIRON [Suspect]
     Indication: COMPUTERISED TOMOGRAM ABDOMEN
     Dosage: 3 ML/ SEC
     Route: 042
     Dates: start: 20060728, end: 20060728
  4. CYANOCOBALAMIN [Concomitant]
     Route: 048
  5. GASTER D [Concomitant]
     Route: 048
  6. ALDACTONE-A [Concomitant]
     Route: 050
  7. ZYLORIC [Concomitant]
     Route: 050
  8. URSO [Concomitant]
     Route: 050
  9. UFT [Concomitant]
     Route: 050

REACTIONS (7)
  - ANAPHYLACTIC SHOCK [None]
  - BLOOD PRESSURE IMMEASURABLE [None]
  - DEPRESSED LEVEL OF CONSCIOUSNESS [None]
  - MICTURITION URGENCY [None]
  - PNEUMONIA ASPIRATION [None]
  - RESPIRATORY ARREST [None]
  - VOMITING [None]
